FAERS Safety Report 8234738-5 (Version None)
Quarter: 2012Q1

REPORT INFORMATION
  Report Type: 
  Country: None (occurrence: None)
  Receive Date: 20120322
  Receipt Date: 20120309
  Transmission Date: 20120608
  Serious: Yes (Other)
  Sender: FDA-Public Use
  Company Number: 2012AP000683

PATIENT
  Age: 16 Year
  Sex: Male

DRUGS (3)
  1. SERTRALINE HYDROCHLORIDE [Suspect]
     Indication: DEPRESSION
  2. FLUOXETINE [Suspect]
     Indication: DEPRESSION
     Dosage: 20 MG ; 40 MG ; 60 MG
  3. VALPROATE SODIUM [Suspect]
     Indication: PRODUCT USED FOR UNKNOWN INDICATION
     Dosage: 1000 MG

REACTIONS (21)
  - ANXIETY [None]
  - DISORIENTATION [None]
  - PALPITATIONS [None]
  - DRUG INTERACTION [None]
  - OBSESSIVE THOUGHTS [None]
  - IMPULSIVE BEHAVIOUR [None]
  - AGITATION [None]
  - THINKING ABNORMAL [None]
  - HOMICIDAL IDEATION [None]
  - SUICIDAL IDEATION [None]
  - AGGRESSION [None]
  - HOMICIDE [None]
  - WITHDRAWAL SYNDROME [None]
  - AFFECT LABILITY [None]
  - AKATHISIA [None]
  - RESTLESSNESS [None]
  - TREMOR [None]
  - SUICIDE ATTEMPT [None]
  - INTENTIONAL SELF-INJURY [None]
  - NEGATIVE THOUGHTS [None]
  - OBSESSIVE-COMPULSIVE DISORDER [None]
